FAERS Safety Report 5363399-8 (Version None)
Quarter: 2007Q2

REPORT INFORMATION
  Report Type: 
  Country: None (occurrence: None)
  Receive Date: 20070615
  Receipt Date: 20070605
  Transmission Date: 20071010
  Serious: Yes (Other)
  Sender: FDA-Public Use
  Company Number: 2007SP011345

PATIENT
  Age: 28 Year
  Sex: Male

DRUGS (3)
  1. VIRAFERONPEG [Suspect]
     Indication: HEPATITIS C
     Dosage: SEE IMAGE
     Dates: start: 20060925, end: 20061201
  2. VIRAFERONPEG [Suspect]
     Indication: HEPATITIS C
     Dosage: SEE IMAGE
     Dates: start: 20061201, end: 20070201
  3. REBETOL [Suspect]
     Indication: HEPATITIS C
     Dates: start: 20060925, end: 20070201

REACTIONS (3)
  - CANDIDIASIS [None]
  - SERONEGATIVE ARTHRITIS [None]
  - WHITE BLOOD CELL COUNT DECREASED [None]
